FAERS Safety Report 18660669 (Version 4)
Quarter: 2021Q1

REPORT INFORMATION
  Report Type: Report from Study
  Country: US (occurrence: US)
  Receive Date: 20201224
  Receipt Date: 20210331
  Transmission Date: 20210419
  Serious: Yes (Hospitalization)
  Sender: FDA-Public Use
  Company Number: US-TAKEDA-2020TUS059085

PATIENT
  Age: 52 Year
  Sex: Female

DRUGS (12)
  1. TEDUGLUTIDE [Suspect]
     Active Substance: TEDUGLUTIDE
     Indication: SHORT-BOWEL SYNDROME
     Dosage: 2.175 MILLIGRAM, QD
     Route: 058
     Dates: start: 20201117, end: 20201201
  2. TEDUGLUTIDE [Suspect]
     Active Substance: TEDUGLUTIDE
     Dosage: 1.102 MILLIGRAM, QD
     Route: 058
     Dates: start: 20201117
  3. TEDUGLUTIDE [Suspect]
     Active Substance: TEDUGLUTIDE
     Indication: ILEOSTOMY
     Dosage: 2.175 MILLIGRAM, QD
     Route: 058
     Dates: start: 20201117
  4. TEDUGLUTIDE [Suspect]
     Active Substance: TEDUGLUTIDE
     Indication: SHORT-BOWEL SYNDROME
     Dosage: 2.175 MILLIGRAM, QD
     Route: 058
     Dates: start: 20201117, end: 20201201
  5. TEDUGLUTIDE [Suspect]
     Active Substance: TEDUGLUTIDE
     Dosage: 1.102 MILLIGRAM, QD
     Route: 058
     Dates: start: 20201117
  6. TEDUGLUTIDE [Suspect]
     Active Substance: TEDUGLUTIDE
     Indication: SHORT-BOWEL SYNDROME
     Dosage: 2.175 MILLIGRAM, QD
     Route: 058
     Dates: start: 20201117, end: 20201201
  7. TEDUGLUTIDE [Suspect]
     Active Substance: TEDUGLUTIDE
     Indication: ILEOSTOMY
     Dosage: 2.175 MILLIGRAM, QD
     Route: 058
     Dates: start: 20201117
  8. TEDUGLUTIDE [Suspect]
     Active Substance: TEDUGLUTIDE
     Indication: ILEOSTOMY
     Dosage: 2.175 MILLIGRAM, QD
     Route: 058
     Dates: start: 20201117
  9. TEDUGLUTIDE [Suspect]
     Active Substance: TEDUGLUTIDE
     Dosage: 1.102 MILLIGRAM, QD
     Route: 058
     Dates: start: 20201117
  10. TEDUGLUTIDE [Suspect]
     Active Substance: TEDUGLUTIDE
     Indication: ILEOSTOMY
     Dosage: 2.175 MILLIGRAM, QD
     Route: 058
     Dates: start: 20201117
  11. TEDUGLUTIDE [Suspect]
     Active Substance: TEDUGLUTIDE
     Indication: SHORT-BOWEL SYNDROME
     Dosage: 2.175 MILLIGRAM, QD
     Route: 058
     Dates: start: 20201117, end: 20201201
  12. TEDUGLUTIDE [Suspect]
     Active Substance: TEDUGLUTIDE
     Dosage: 1.102 MILLIGRAM, QD
     Route: 058
     Dates: start: 20201117

REACTIONS (3)
  - Constipation [Unknown]
  - Nausea [Unknown]
  - Stoma complication [Unknown]

NARRATIVE: CASE EVENT DATE: 20201201
